FAERS Safety Report 16352334 (Version 1)
Quarter: 2019Q2

REPORT INFORMATION
  Report Type: Spontaneous
  Country: IT (occurrence: IT)
  Receive Date: 20190524
  Receipt Date: 20190524
  Transmission Date: 20190711
  Serious: Yes (Other)
  Sender: FDA-Public Use
  Company Number: IT-B.I. PHARMACEUTICALS,INC./RIDGEFIELD-2019-BI-022760

PATIENT
  Age: 46 Year
  Sex: Female

DRUGS (1)
  1. GILOTRIF [Suspect]
     Active Substance: AFATINIB
     Indication: LUNG ADENOCARCINOMA
     Route: 065
     Dates: start: 201506, end: 201509

REACTIONS (4)
  - Metastases to lung [Recovering/Resolving]
  - Malignant neoplasm progression [Unknown]
  - Lymphocytic infiltration [Recovering/Resolving]
  - Metastases to liver [Recovering/Resolving]
